FAERS Safety Report 11804452 (Version 1)
Quarter: 2015Q4

REPORT INFORMATION
  Report Type: Spontaneous
  Country: US (occurrence: US)
  Receive Date: 20151204
  Receipt Date: 20151204
  Transmission Date: 20160305
  Serious: Yes (Other)
  Sender: FDA-Public Use
  Company Number: US-TEVA-615284USA

PATIENT
  Sex: Female

DRUGS (1)
  1. PARAGARD T 380A [Suspect]
     Active Substance: COPPER
     Route: 015
     Dates: start: 2013

REACTIONS (5)
  - Anaemia [Unknown]
  - Device dislocation [Unknown]
  - Haematochezia [Unknown]
  - Uterine perforation [Unknown]
  - Device expulsion [Unknown]

NARRATIVE: CASE EVENT DATE: 2013
